FAERS Safety Report 18130493 (Version 1)
Quarter: 2020Q3

REPORT INFORMATION
  Report Type: Spontaneous
  Country: US (occurrence: US)
  Receive Date: 20200810
  Receipt Date: 20200810
  Transmission Date: 20201103
  Serious: No
  Sender: FDA-Public Use
  Company Number: US-BEH-2020120909

PATIENT
  Sex: Male

DRUGS (3)
  1. HIZENTRA [Suspect]
     Active Substance: HUMAN IMMUNOGLOBULIN G
     Indication: CHOREA
     Dosage: 1 GRAM, QW
     Route: 058
     Dates: start: 20200604
  2. HIZENTRA [Suspect]
     Active Substance: HUMAN IMMUNOGLOBULIN G
     Dosage: 10 GRAM, QW
     Route: 058
     Dates: start: 20200609
  3. HIZENTRA [Suspect]
     Active Substance: HUMAN IMMUNOGLOBULIN G
     Dosage: 2 GRAM, QW
     Route: 058
     Dates: start: 20200604

REACTIONS (5)
  - Infusion site erythema [Unknown]
  - No adverse event [Unknown]
  - Infusion site swelling [Unknown]
  - Infusion site pruritus [Unknown]
  - Product use in unapproved indication [Unknown]
